FAERS Safety Report 9691123 (Version 1)
Quarter: 2013Q4

REPORT INFORMATION
  Report Type: Spontaneous
  Country: FR (occurrence: FR)
  Receive Date: 20131115
  Receipt Date: 20131115
  Transmission Date: 20140711
  Serious: Yes (Other)
  Sender: FDA-Public Use
  Company Number: FR-BRISTOL-MYERS SQUIBB COMPANY-19788256

PATIENT
  Age: 26 Year
  Sex: Male

DRUGS (3)
  1. DAFALGAN ORAL [Suspect]
     Indication: TOOTHACHE
     Dosage: 1 SINGLE INTAKE
     Route: 048
     Dates: start: 20131005
  2. EFFERALGAN [Suspect]
     Indication: TOOTHACHE
     Dosage: 1 SINGLE INTAKE
     Route: 048
     Dates: start: 20131005
  3. BARACLUDE TABS 1.0 MG [Suspect]
     Dosage: 1DF= 1 TABLET.?1 SINGLE INTAKE
     Route: 048
     Dates: start: 20131005

REACTIONS (4)
  - Vomiting [Recovered/Resolved]
  - Abdominal pain [Recovered/Resolved]
  - Wrong drug administered [Unknown]
  - Overdose [Unknown]
